FAERS Safety Report 5514739-8 (Version None)
Quarter: 2007Q4

REPORT INFORMATION
  Report Type: 
  Country: None (occurrence: None)
  Receive Date: 20071113
  Receipt Date: 20071108
  Transmission Date: 20080405
  Serious: Yes (Other)
  Sender: FDA-Public Use
  Company Number: CA-ASTRAZENECA-2007UW26059

PATIENT
  Age: 75 Year
  Sex: Male

DRUGS (15)
  1. XYLOCAINE [Suspect]
     Route: 047
  2. CYCLOPENTOLATE HYDROCHLORIDE [Suspect]
     Route: 047
  3. LIGNOCAINE [Suspect]
     Route: 047
  4. PHENYLEPHRINE HYDROCHLORIDE [Suspect]
     Route: 047
  5. PILOCARPINE [Suspect]
     Route: 047
  6. PREDNISOLONE [Suspect]
     Route: 047
  7. PROVIODINE [Suspect]
     Route: 047
  8. TETRACAINE POLYGYL STERILE OPHTHALMIC SOLUTION [Suspect]
     Route: 047
  9. TROPICAMIDE [Suspect]
     Route: 047
  10. VANCOMYCIN [Suspect]
  11. ZYMAR [Suspect]
     Route: 047
  12. ALLOPURINOL [Concomitant]
  13. ASPIRIN [Concomitant]
  14. COSOPT [Concomitant]
  15. XALATAN [Concomitant]

REACTIONS (2)
  - EYE DISORDER [None]
  - INFLAMMATION [None]
